FAERS Safety Report 17157304 (Version 2)
Quarter: 2020Q2

REPORT INFORMATION
  Report Type: Other
  Country: GB (occurrence: GB)
  Receive Date: 20191216
  Receipt Date: 20200413
  Transmission Date: 20200713
  Serious: Yes (Other)
  Sender: FDA-Public Use
  Company Number: GB-STRIDES ARCOLAB LIMITED-2019SP012899

PATIENT
  Age: 23 Year
  Sex: Male

DRUGS (4)
  1. DICLOFENAC [Suspect]
     Active Substance: DICLOFENAC
     Indication: PRODUCT USED FOR UNKNOWN INDICATION
     Dosage: 0.1 PERCENT, EVERY 6 HRS (0.1 %, QID) (0.4 % PER DAY)
     Route: 061
  2. CHLORAMPHENICOL [Suspect]
     Active Substance: CHLORAMPHENICOL
     Indication: PRODUCT USED FOR UNKNOWN INDICATION
     Dosage: 1 PERCENT, EVERY 6 HRS (1.0 %, QID) (4 % PER DAY)
     Route: 061
  3. CYCLOPENTOLATE. [Suspect]
     Active Substance: CYCLOPENTOLATE
     Indication: PRODUCT USED FOR UNKNOWN INDICATION
     Dosage: 1 PERCENT, EVERY 8 HOURS (1 %, TID) (3 % PER DAY)
     Route: 061
  4. SODIUM HYALURONATE [Suspect]
     Active Substance: HYALURONATE SODIUM
     Indication: PRODUCT USED FOR UNKNOWN INDICATION
     Dosage: 0.2 PERCENT, EVERY 2 HRS (0.2 %, Q2H)
     Route: 061

REACTIONS (2)
  - Keratopathy [Recovered/Resolved]
  - Visual impairment [Recovered/Resolved]
